FAERS Safety Report 6756225-3 (Version None)
Quarter: 2010Q2

REPORT INFORMATION
  Report Type: 
  Country: None (occurrence: None)
  Receive Date: 20100604
  Receipt Date: 20100527
  Transmission Date: 20101027
  Serious: Yes (Hospitalization)
  Sender: FDA-Public Use
  Company Number: PHHO2010DK07548

PATIENT
  Sex: Male
  Weight: 101 kg

DRUGS (7)
  1. BLINDED ALISKIREN ALI+TAB+CF [Suspect]
     Dosage: CODE NOT BROKEN
     Route: 048
     Dates: start: 20100121, end: 20100518
  2. BLINDED ENALAPRIL COMP-ENA+ [Suspect]
     Dosage: CODE NOT BROKEN
     Route: 048
     Dates: start: 20100121, end: 20100518
  3. BLINDED NO TREATMENT RECEIVED NOMED [Suspect]
     Dosage: CODE NOT BROKEN
     Route: 048
     Dates: start: 20100121, end: 20100518
  4. COMPARATOR ENALAPRIL [Suspect]
     Indication: CARDIAC FAILURE
     Dosage: 10 MG X 2
     Route: 048
     Dates: start: 20100114, end: 20100211
  5. ALISKIREN [Suspect]
     Indication: CARDIAC FAILURE
     Dosage: 150 MG X 1
     Route: 048
     Dates: start: 20100121, end: 20100211
  6. FUROSEMID [Concomitant]
  7. SPIRONOLACTONE [Concomitant]

REACTIONS (8)
  - CARDIAC FAILURE [None]
  - CARDIAC OUTPUT DECREASED [None]
  - DISEASE PROGRESSION [None]
  - DRUG INEFFECTIVE [None]
  - DYSPNOEA [None]
  - OEDEMA PERIPHERAL [None]
  - PERIPHERAL COLDNESS [None]
  - WEIGHT INCREASED [None]
